FAERS Safety Report 4585469-4 (Version None)
Quarter: 2005Q1

REPORT INFORMATION
  Report Type: 
  Country: None (occurrence: None)
  Receive Date: 20050216
  Receipt Date: 20050216
  Transmission Date: 20050727
  Serious: No
  Sender: FDA-Public Use
  Company Number: None

PATIENT
  Age: 66 Year
  Sex: Female
  Weight: 74.8435 kg

DRUGS (2)
  1. HYDROCODONE/APAP  5/500  QUALITEST-VINTAGE [Suspect]
     Indication: PAIN
     Dosage: 1/2 TO 1 TAB  3 TIMES DAILY  ORAL
     Route: 048
     Dates: start: 20041203, end: 20050103
  2. HYDROCODONE/APAP  5/500  QUALITEST-VINTAGE [Suspect]
     Indication: PAIN
     Dosage: 1/2 TO 1 TAB  3 TIMES DAILY ORAL
     Route: 048
     Dates: start: 20050111, end: 20050211

REACTIONS (1)
  - MEDICATION ERROR [None]
